FAERS Safety Report 7314060-1 (Version None)
Quarter: 2011Q1

REPORT INFORMATION
  Report Type: 
  Country: None (occurrence: None)
  Receive Date: 20110225
  Receipt Date: 20100507
  Transmission Date: 20110831
  Serious: No
  Sender: FDA-Public Use
  Company Number: US-MYLANLABS-2010S1006951

PATIENT
  Age: 18 Year
  Sex: Male
  Weight: 72.12 kg

DRUGS (5)
  1. CLARAVIS [Suspect]
     Indication: ACNE
     Route: 048
     Dates: start: 20091201, end: 20100417
  2. SOTRET [Suspect]
     Indication: ACNE
     Route: 048
     Dates: start: 20091119, end: 20091201
  3. AMNESTEEM [Suspect]
     Route: 048
     Dates: start: 20091201, end: 20100417
  4. AMNESTEEM [Suspect]
     Indication: ACNE
     Route: 048
     Dates: start: 20091119, end: 20091201
  5. AMNESTEEM [Suspect]
     Route: 048
     Dates: start: 20100201, end: 20100417

REACTIONS (11)
  - VISION BLURRED [None]
  - MOOD SWINGS [None]
  - AMNESIA [None]
  - INSOMNIA [None]
  - DEPRESSION [None]
  - MENTAL IMPAIRMENT [None]
  - ARTHRALGIA [None]
  - ECZEMA [None]
  - MEMORY IMPAIRMENT [None]
  - CHAPPED LIPS [None]
  - LIP DRY [None]
